FAERS Safety Report 7570903-8 (Version None)
Quarter: 2011Q2

REPORT INFORMATION
  Report Type: 
  Country: None (occurrence: None)
  Receive Date: 20110622
  Receipt Date: 20110622
  Transmission Date: 20111010
  Serious: Yes (Other)
  Sender: FDA-Public Use
  Company Number: None

PATIENT
  Sex: Female
  Weight: 71 kg

DRUGS (1)
  1. FLUOXETINE [Suspect]
     Indication: CONVULSION
     Dosage: 1 CAPSULE EVERY MORNING BY MOUTH
     Route: 048
     Dates: start: 20100706, end: 20100807

REACTIONS (2)
  - PRODUCT SUBSTITUTION ISSUE [None]
  - CONVULSION [None]
